FAERS Safety Report 24217040 (Version 1)
Quarter: 2024Q3

REPORT INFORMATION
  Report Type: Spontaneous
  Country: US (occurrence: US)
  Receive Date: 20240816
  Receipt Date: 20240816
  Transmission Date: 20241016
  Serious: Yes (Hospitalization)
  Sender: BRISTOL MYERS SQUIBB
  Company Number: US-BRISTOL-MYERS SQUIBB COMPANY-2024-128888

PATIENT
  Age: 86 Year
  Sex: Male
  Weight: 55.34 kg

DRUGS (3)
  1. REVLIMID [Suspect]
     Active Substance: LENALIDOMIDE
     Indication: Neoplasm
     Route: 048
  2. REVLIMID [Suspect]
     Active Substance: LENALIDOMIDE
     Indication: Nausea
  3. REVLIMID [Suspect]
     Active Substance: LENALIDOMIDE
     Indication: Vomiting

REACTIONS (1)
  - Cardiac disorder [Unknown]
